FAERS Safety Report 15439949 (Version 5)
Quarter: 2019Q4

REPORT INFORMATION
  Report Type: Spontaneous
  Country: RO (occurrence: RO)
  Receive Date: 20180928
  Receipt Date: 20191022
  Transmission Date: 20200122
  Serious: Yes (Hospitalization, Other)
  Sender: FDA-Public Use
  Company Number: RO-MYLANLABS-2018M1070354

PATIENT
  Age: 68 Year
  Sex: Male

DRUGS (2)
  1. IBUPROFEN. [Suspect]
     Active Substance: IBUPROFEN
     Indication: MIGRAINE
     Dosage: OVER 2G, QD
     Route: 048
  2. CARBAMAZEPINE. [Concomitant]
     Active Substance: CARBAMAZEPINE
     Indication: MIGRAINE
     Dosage: 600 MILLIGRAM, QD
     Route: 065

REACTIONS (26)
  - Pallor [Unknown]
  - Pneumonia [Unknown]
  - Cholestasis [Unknown]
  - Nutritional condition abnormal [Unknown]
  - Weight increased [Unknown]
  - Secretion discharge [Unknown]
  - Systemic inflammatory response syndrome [Unknown]
  - Productive cough [Unknown]
  - Haemangioma of liver [Unknown]
  - Lymphadenopathy [Unknown]
  - Overdose [Unknown]
  - Intentional product misuse [Unknown]
  - Hypokalaemia [Unknown]
  - Cachexia [Unknown]
  - Fistula [Unknown]
  - Disease recurrence [Recovering/Resolving]
  - Dysphagia [Recovering/Resolving]
  - Dysphonia [Unknown]
  - Adrenal adenoma [Unknown]
  - Drug abuse [Unknown]
  - Acquired tracheo-oesophageal fistula [Recovering/Resolving]
  - Cough [Unknown]
  - Anaemia [Unknown]
  - Adenoma benign [Unknown]
  - Rales [Unknown]
  - Lymphadenopathy mediastinal [Unknown]
